FAERS Safety Report 10725224 (Version 3)
Quarter: 2015Q1

REPORT INFORMATION
  Report Type: Spontaneous
  Country: CN (occurrence: CN)
  Receive Date: 20150120
  Receipt Date: 20150319
  Transmission Date: 20150721
  Serious: Yes (Other)
  Sender: FDA-Public Use
  Company Number: CN-JNJFOC-20150103973

PATIENT
  Age: 8 Year
  Sex: Male
  Weight: 29.5 kg

DRUGS (13)
  1. TYLENOL [Suspect]
     Active Substance: ACETAMINOPHEN
     Indication: PYREXIA
     Route: 048
     Dates: start: 20140810, end: 20140810
  2. GLUCOSE INJECTION [Concomitant]
     Indication: ADJUVANT THERAPY
     Route: 042
     Dates: start: 20140808, end: 20140810
  3. SODIUM CHLORIDE. [Concomitant]
     Active Substance: SODIUM CHLORIDE
     Indication: TONSILLITIS
     Route: 042
     Dates: start: 20140808, end: 20140810
  4. GLUCOSE INJECTION [Concomitant]
     Indication: TONSILLITIS
     Route: 042
     Dates: start: 20140808, end: 20140810
  5. PIPERACILLIN SODIUM / TAZOBACTAM SODIUM [Concomitant]
     Indication: INFECTION
     Route: 042
     Dates: start: 20140808, end: 20140810
  6. SODIUM CHLORIDE. [Concomitant]
     Active Substance: SODIUM CHLORIDE
     Indication: ADJUVANT THERAPY
     Route: 042
     Dates: start: 20140808, end: 20140810
  7. PIPERACILLIN SODIUM / TAZOBACTAM SODIUM [Concomitant]
     Indication: TONSILLITIS
     Route: 042
     Dates: start: 20140808, end: 20140810
  8. VITAMIN C [Concomitant]
     Active Substance: ASCORBIC ACID
     Indication: ADJUVANT THERAPY
     Route: 042
     Dates: start: 20140808, end: 20140810
  9. VITAMIN C [Concomitant]
     Active Substance: ASCORBIC ACID
     Indication: TONSILLITIS
     Route: 042
     Dates: start: 20140808, end: 20140810
  10. CEFTRIAXONE SODIUM. [Concomitant]
     Active Substance: CEFTRIAXONE SODIUM
     Indication: INFECTION
     Route: 042
     Dates: start: 20140808, end: 20140810
  11. SODIUM CHLORIDE. [Concomitant]
     Active Substance: SODIUM CHLORIDE
     Indication: ADJUVANT THERAPY
     Route: 042
     Dates: start: 20140808, end: 20140810
  12. SODIUM CHLORIDE. [Concomitant]
     Active Substance: SODIUM CHLORIDE
     Indication: TONSILLITIS
     Route: 042
     Dates: start: 20140808, end: 20140810
  13. CEFTRIAXONE SODIUM. [Concomitant]
     Active Substance: CEFTRIAXONE SODIUM
     Indication: TONSILLITIS
     Route: 042
     Dates: start: 20140808, end: 20140810

REACTIONS (1)
  - Urticaria [Recovered/Resolved]

NARRATIVE: CASE EVENT DATE: 20140810
